FAERS Safety Report 25250383 (Version 1)
Quarter: 2025Q2

REPORT INFORMATION
  Report Type: Spontaneous
  Country: CN (occurrence: CN)
  Receive Date: 20250429
  Receipt Date: 20250429
  Transmission Date: 20250717
  Serious: Yes (Other)
  Sender: CHEPLAPHARM
  Company Number: CN-CHEPLA-2025005363

PATIENT
  Age: 19 Year
  Sex: Male

DRUGS (11)
  1. OLANZAPINE [Suspect]
     Active Substance: OLANZAPINE
     Indication: Affective disorder
     Dosage: DAILY DOSE: 2.5 MILLIGRAM
  2. OLANZAPINE [Suspect]
     Active Substance: OLANZAPINE
     Indication: Affective disorder
     Dosage: DAILY DOSE: 5 MILLIGRAM
  3. RISPERIDONE [Suspect]
     Active Substance: RISPERIDONE
     Indication: Affective disorder
     Dosage: DAILY DOSE: 6 MILLIGRAM
  4. RISPERIDONE [Suspect]
     Active Substance: RISPERIDONE
     Indication: Dystonia
     Dosage: DAILY DOSE: 6 MILLIGRAM
  5. FLUVOXAMINE [Suspect]
     Active Substance: FLUVOXAMINE
     Indication: Affective disorder
     Dosage: DAILY DOSE: 100 MILLIGRAM
  6. TRIHEXYPHENIDYL [Suspect]
     Active Substance: TRIHEXYPHENIDYL
     Indication: Affective disorder
     Dosage: DAILY DOSE: 6 MILLIGRAM
     Route: 048
  7. DIAZEPAM [Suspect]
     Active Substance: DIAZEPAM
     Dosage: DAILY DOSE: 10 MILLIGRAM
  8. LORAZEPAM [Suspect]
     Active Substance: LORAZEPAM
     Dosage: DAILY DOSE: 2 MILLIGRAM
  9. VALPROATE SODIUM [Suspect]
     Active Substance: VALPROATE SODIUM
     Dosage: DAILY DOSE: 500 MILLIGRAM
  10. SERTRALINE [Suspect]
     Active Substance: SERTRALINE HYDROCHLORIDE
     Dosage: DAILY DOSE: 25 MILLIGRAM
  11. SCOPOLAMINE [Concomitant]
     Active Substance: SCOPOLAMINE
     Route: 030

REACTIONS (10)
  - Hallucination, auditory [Recovered/Resolved]
  - Respiratory tract infection [Unknown]
  - Therapy cessation [Recovered/Resolved]
  - Depression [Recovered/Resolved]
  - Ideas of reference [Recovered/Resolved]
  - Extensor plantar response [Recovered/Resolved]
  - Cogwheel rigidity [Recovered/Resolved]
  - Bundle branch block right [Unknown]
  - Bundle branch block left [Unknown]
  - Off label use [Not Recovered/Not Resolved]
